FAERS Safety Report 24462666 (Version 1)
Quarter: 2024Q4

REPORT INFORMATION
  Report Type: Spontaneous
  Country: US (occurrence: US)
  Receive Date: 20241018
  Receipt Date: 20241018
  Transmission Date: 20250115
  Serious: No
  Sender: CIPLA
  Company Number: US-CIPLA LTD.-2024US04199

PATIENT

DRUGS (1)
  1. AMLODIPINE [Suspect]
     Active Substance: AMLODIPINE BESYLATE
     Indication: Product used for unknown indication
     Dosage: 10 MILLIGRAM, QD (1 TABLET DAILY)
     Route: 065
     Dates: start: 20240421

REACTIONS (3)
  - Product dispensing error [Unknown]
  - Wrong product administered [Unknown]
  - Product commingling [Unknown]

NARRATIVE: CASE EVENT DATE: 20240420
